FAERS Safety Report 19278600 (Version 1)
Quarter: 2021Q2

REPORT INFORMATION
  Report Type: Spontaneous
  Country: US (occurrence: US)
  Receive Date: 20210520
  Receipt Date: 20210520
  Transmission Date: 20210717
  Serious: Yes (Life-Threatening, Other)
  Sender: FDA-Public Use
  Company Number: None

PATIENT
  Age: 32 Year
  Sex: Male

DRUGS (1)
  1. LIZA BOTANICALS SUPER GREEN ELEPHANT KRATOM [Suspect]
     Active Substance: HERBALS\MITRAGYNINE

REACTIONS (9)
  - Renal disorder [None]
  - Fluid retention [None]
  - Peripheral swelling [None]
  - Physical product label issue [None]
  - Gallbladder disorder [None]
  - Dysuria [None]
  - Abdominal distension [None]
  - Liver disorder [None]
  - Hepatitis [None]

NARRATIVE: CASE EVENT DATE: 20210416
